FAERS Safety Report 5955730-7 (Version None)
Quarter: 2008Q4

REPORT INFORMATION
  Report Type: 
  Country: None (occurrence: None)
  Receive Date: 20081117
  Receipt Date: 20081113
  Transmission Date: 20090506
  Serious: Yes (Hospitalization, Other)
  Sender: FDA-Public Use
  Company Number: JP-ROXANE LABORATORIES, INC.-2008-RO-00225RO

PATIENT
  Age: 43 Year
  Sex: Female

DRUGS (6)
  1. MERCAPTOPURINE [Suspect]
     Indication: CROHN'S DISEASE
     Dosage: 10MG
     Dates: start: 20060401
  2. MERCAPTOPURINE [Suspect]
     Indication: PROPHYLAXIS
  3. INFLIXIMAB [Suspect]
     Indication: CROHN'S DISEASE
     Dates: start: 20060401
  4. LAMIVUDINE [Suspect]
     Indication: HEPATITIS B
     Dosage: 100MG
     Route: 048
  5. CORTICOSTEROIDS [Suspect]
     Indication: CROHN'S DISEASE
     Dosage: 30MG
     Dates: start: 19930101
  6. SULFASALAZINE [Suspect]
     Indication: CROHN'S DISEASE

REACTIONS (3)
  - CROHN'S DISEASE [None]
  - HEPATIC FUNCTION ABNORMAL [None]
  - HEPATITIS B [None]
